FAERS Safety Report 9123429 (Version 2)
Quarter: 2013Q1

REPORT INFORMATION
  Report Type: Spontaneous
  Country: BR (occurrence: BR)
  Receive Date: 20130227
  Receipt Date: 20130318
  Transmission Date: 20140127
  Serious: Yes (Hospitalization)
  Sender: FDA-Public Use
  Company Number: BR-ROCHE-1139091

PATIENT
  Sex: Female
  Weight: 54 kg

DRUGS (3)
  1. XELODA [Suspect]
     Indication: METASTASES TO LUNG
     Dosage: THREE 500 MG TAB PER DAY FOR 7 DAYS, THEN TWO 500 MG TABLETS IN THE MORNING AND TWO 500 MG TABLETS I
     Route: 048
     Dates: start: 201112
  2. LIPEX [Concomitant]
     Indication: BLOOD CHOLESTEROL ABNORMAL
  3. OMEPRAZOLE [Concomitant]
     Indication: GASTRIC DISORDER

REACTIONS (11)
  - Skin fissures [Not Recovered/Not Resolved]
  - Wound [Not Recovered/Not Resolved]
  - Aphthous stomatitis [Recovered/Resolved]
  - Pain in extremity [Not Recovered/Not Resolved]
  - Gait disturbance [Not Recovered/Not Resolved]
  - Liver disorder [Not Recovered/Not Resolved]
  - Skin exfoliation [Not Recovered/Not Resolved]
  - Skin discolouration [Not Recovered/Not Resolved]
  - Skin warm [Not Recovered/Not Resolved]
  - Respiratory disorder [Unknown]
  - Pneumonia [Recovered/Resolved]
